FAERS Safety Report 16491655 (Version 2)
Quarter: 2019Q3

REPORT INFORMATION
  Report Type: Spontaneous
  Country: US (occurrence: US)
  Receive Date: 20190628
  Receipt Date: 20190703
  Transmission Date: 20191004
  Serious: No
  Sender: FDA-Public Use
  Company Number: US-009507513-1906USA007301

PATIENT
  Age: 68 Year
  Sex: Male

DRUGS (4)
  1. VANCOMYCIN [Concomitant]
     Active Substance: VANCOMYCIN
     Indication: BACTERAEMIA
     Dosage: 15 MG/KG, EVERY 12 HOURS
  2. CUBICIN [Suspect]
     Active Substance: DAPTOMYCIN
     Indication: BACTERAEMIA
     Dosage: 6 MG/KG DAILY
     Route: 065
  3. CUBICIN [Suspect]
     Active Substance: DAPTOMYCIN
     Dosage: 10 MG/KG DAILY
     Route: 065
  4. CEFTAROLINE FOSAMIL ACETATE [Concomitant]
     Active Substance: CEFTAROLINE FOSAMIL
     Indication: BACTERAEMIA
     Dosage: 600 MG, EVERY 8 HOURS

REACTIONS (2)
  - Drug resistance [Unknown]
  - Off label use [Unknown]
